FAERS Safety Report 5858341-7 (Version None)
Quarter: 2008Q3

REPORT INFORMATION
  Report Type: 
  Country: None (occurrence: None)
  Receive Date: 20080818
  Receipt Date: 20080602
  Transmission Date: 20090109
  Serious: No
  Sender: FDA-Public Use
  Company Number: WAES 0806USA00308

PATIENT
  Age: 71 Year
  Sex: Male

DRUGS (12)
  1. JANUVIA [Suspect]
     Indication: PANCREATIC DISORDER
     Dosage: 100 MG/DAILY/PO
     Route: 048
     Dates: start: 20061001
  2. AMBIEN [Concomitant]
  3. CELEBREX [Concomitant]
  4. NEXIUM [Concomitant]
  5. ZOCOR [Concomitant]
  6. ACARBOSE [Concomitant]
  7. ASPIRIN [Concomitant]
  8. GLIPIZIDE [Concomitant]
  9. METFORMIN HCL [Concomitant]
  10. NIACIN [Concomitant]
  11. PANCREATIC EXTRACT [Concomitant]
  12. PIOGLITAZONE HYDROCHLORIDE [Concomitant]

REACTIONS (1)
  - MEDICATION RESIDUE [None]
